FAERS Safety Report 7300886-7 (Version None)
Quarter: 2010Q4

REPORT INFORMATION
  Report Type: 
  Country: None (occurrence: None)
  Receive Date: 20101229
  Receipt Date: 20101122
  Transmission Date: 20110411
  Serious: No
  Sender: FDA-Public Use
  Company Number: 1000017462

PATIENT
  Age: 68 Year
  Sex: Male

DRUGS (5)
  1. BYSTOLIC [Suspect]
     Indication: HYPERTENSION
     Dosage: 5 MG (5 MG, 1 IN 1 D), ORAL
     Route: 048
     Dates: start: 20100701
  2. DIOVAN [Concomitant]
  3. LIPITOR [Concomitant]
  4. CALCIUM (TABLETS) [Concomitant]
  5. ALLOPURINOL [Concomitant]

REACTIONS (1)
  - ALOPECIA [None]
